FAERS Safety Report 11667328 (Version 1)
Quarter: 2015Q4

REPORT INFORMATION
  Report Type: Spontaneous
  Country: US (occurrence: US)
  Receive Date: 20151027
  Receipt Date: 20151027
  Transmission Date: 20160304
  Serious: No
  Sender: FDA-Public Use
  Company Number: US-ELI_LILLY_AND_COMPANY-US200912002969

PATIENT
  Age: 54 Year
  Sex: Female
  Weight: 47.62 kg

DRUGS (4)
  1. DILAUDID [Concomitant]
     Active Substance: HYDROMORPHONE HYDROCHLORIDE
     Dosage: 4 MG, UNK
  2. ANESTHETICS [Concomitant]
     Active Substance: UNSPECIFIED INGREDIENT
     Dates: start: 20090909
  3. FORTEO [Suspect]
     Active Substance: TERIPARATIDE
     Dosage: 20 UG, DAILY (1/D)
     Dates: start: 2009
  4. FENTANYL. [Concomitant]
     Active Substance: FENTANYL
     Dosage: 50 MG, UNK

REACTIONS (7)
  - Visual acuity reduced [Unknown]
  - Nausea [Unknown]
  - Crying [Unknown]
  - Nodule [Unknown]
  - Vomiting [Unknown]
  - Incoherent [Unknown]
  - Emotional distress [Unknown]

NARRATIVE: CASE EVENT DATE: 2009
